FAERS Safety Report 4494904-1 (Version None)
Quarter: 2004Q4

REPORT INFORMATION
  Report Type: 
  Country: None (occurrence: None)
  Receive Date: 20041103
  Receipt Date: 20041025
  Transmission Date: 20050328
  Serious: Yes (Other)
  Sender: FDA-Public Use
  Company Number: 2004-10-1486

PATIENT

DRUGS (2)
  1. TEMODAR [Suspect]
     Dosage: ORAL
     Route: 048
  2. RADIATION THERAPY NO DOSE FORM [Suspect]
     Dosage: X-RAY THERAPY

REACTIONS (2)
  - DYSPNOEA [None]
  - PULMONARY FIBROSIS [None]
